FAERS Safety Report 4799988-9 (Version None)
Quarter: 2005Q4

REPORT INFORMATION
  Report Type: 
  Country: None (occurrence: None)
  Receive Date: 20051013
  Receipt Date: 20051013
  Transmission Date: 20060501
  Serious: No
  Sender: FDA-Public Use
  Company Number: None

PATIENT
  Age: 72 Year
  Sex: Female
  Weight: 65 kg

DRUGS (1)
  1. TPN [Suspect]
     Indication: PANCREATIC DUCT OBSTRUCTION
     Dosage: 1440 ML DAILY 4 PM-8 AM IV DRIP
     Route: 041
     Dates: start: 20051004, end: 20051012

REACTIONS (1)
  - DRUG ADMINISTRATION ERROR [None]
